FAERS Safety Report 6006716-8 (Version None)
Quarter: 2008Q4

REPORT INFORMATION
  Report Type: 
  Country: None (occurrence: None)
  Receive Date: 20081217
  Receipt Date: 20081208
  Transmission Date: 20090506
  Serious: Yes (Hospitalization)
  Sender: FDA-Public Use
  Company Number: FR-ROCHE-532651

PATIENT
  Age: 51 Year
  Sex: Female
  Weight: 60 kg

DRUGS (8)
  1. PEGASYS [Suspect]
     Route: 058
     Dates: start: 20071018, end: 20081016
  2. COPEGUS [Suspect]
     Dosage: DOSAGE REPORTED AS 1200.
     Route: 048
     Dates: start: 20071018, end: 20081016
  3. PROTEASE INHIBITOR [Concomitant]
     Indication: HIV INFECTION
  4. PREZISTA [Concomitant]
     Dosage: DOSAGE REPORTED AS 600 TWICE
     Dates: start: 20070920
  5. NORVIR [Concomitant]
     Dosage: DOSAGE REPORTED AS 100 TWICE
     Dates: start: 20070920
  6. ISOPTIN [Concomitant]
     Dates: end: 20071120
  7. CRESTOR [Concomitant]
     Dosage: DRUG NAME: CRESTOR 10
  8. PLAVIX [Concomitant]

REACTIONS (2)
  - BRADYCARDIA [None]
  - CHEST DISCOMFORT [None]
